FAERS Safety Report 8410069-5 (Version None)
Quarter: 2012Q2

REPORT INFORMATION
  Report Type: 
  Country: None (occurrence: None)
  Receive Date: 20120529
  Receipt Date: 20120511
  Transmission Date: 20120825
  Serious: Yes (Congenital Anomaly)
  Sender: FDA-Public Use
  Company Number: ADR-UNK-041

PATIENT
  Age: 252 Day
  Sex: Male
  Weight: 425.2 kg

DRUGS (5)
  1. LAMIVUDINE/ZIDOVUDINE [Concomitant]
  2. LOPINAVIR AND RITONAVIR [Concomitant]
  3. RITONAVIR [Concomitant]
  4. ZIDOVUDINE [Suspect]
     Indication: ACQUIRED IMMUNODEFICIENCY SYNDROME
     Dosage: BID
     Dates: start: 20110915, end: 20110915
  5. DARUNAVIR HYDRATE [Concomitant]

REACTIONS (3)
  - FOETAL GROWTH RESTRICTION [None]
  - MATERNAL DRUGS AFFECTING FOETUS [None]
  - PREMATURE BABY [None]
